FAERS Safety Report 24167463 (Version 2)
Quarter: 2024Q3

REPORT INFORMATION
  Report Type: Report from Study
  Country: US (occurrence: US)
  Receive Date: 20240802
  Receipt Date: 20240819
  Transmission Date: 20241016
  Serious: Yes (Other)
  Sender: UCB
  Company Number: US-UCBSA-2024035801

PATIENT
  Age: 66 Year
  Sex: Male

DRUGS (1)
  1. ROZANOLIXIZUMAB [Suspect]
     Active Substance: ROZANOLIXIZUMAB
     Indication: Myasthenia gravis
     Dosage: UNK, ONCE WEEKLY FOR 6 WEEKS
     Dates: start: 20240601

REACTIONS (3)
  - Retinal tear [Recovering/Resolving]
  - SARS-CoV-2 test positive [Recovering/Resolving]
  - Diplopia [Not Recovered/Not Resolved]

NARRATIVE: CASE EVENT DATE: 20240708
